FAERS Safety Report 5414903-2 (Version None)
Quarter: 2007Q3

REPORT INFORMATION
  Report Type: 
  Country: None (occurrence: None)
  Receive Date: 20070813
  Receipt Date: 20070813
  Transmission Date: 20080115
  Serious: Yes (Hospitalization)
  Sender: FDA-Public Use
  Company Number: None

PATIENT
  Age: 57 Year
  Sex: Male

DRUGS (1)
  1. CIPROFLOXACIN [Suspect]
     Indication: INFECTION
     Dosage: 400MG Q 12  IV
     Route: 042
     Dates: start: 20070604

REACTIONS (3)
  - HYPERAMMONAEMIA [None]
  - LIVER FUNCTION TEST ABNORMAL [None]
  - METABOLIC ENCEPHALOPATHY [None]
